FAERS Safety Report 5072799-5 (Version None)
Quarter: 2006Q3

REPORT INFORMATION
  Report Type: 
  Country: None (occurrence: None)
  Receive Date: 20060801
  Receipt Date: 20060720
  Transmission Date: 20061208
  Serious: Yes (Hospitalization)
  Sender: FDA-Public Use
  Company Number: JP200607004174

PATIENT
  Age: 74 Year
  Sex: Female

DRUGS (1)
  1. GEMZAR [Suspect]
     Indication: PANCREATIC CARCINOMA STAGE III
     Dosage: 1200 MG, OTHER, INTRAVENOUS
     Route: 042
     Dates: start: 20040524, end: 20040524

REACTIONS (1)
  - PANCYTOPENIA [None]
